FAERS Safety Report 9842972 (Version 1)
Quarter: 2014Q1

REPORT INFORMATION
  Report Type: Spontaneous
  Country: US (occurrence: US)
  Receive Date: 20140124
  Receipt Date: 20140124
  Transmission Date: 20141002
  Serious: Yes (Other)
  Sender: FDA-Public Use
  Company Number: US-PFIZER INC-2014021758

PATIENT
  Age: 48 Year
  Sex: Female
  Weight: 58.05 kg

DRUGS (6)
  1. LIPITOR [Suspect]
     Indication: BLOOD CHOLESTEROL INCREASED
     Dosage: 20 MG, DAILY
     Dates: start: 1996
  2. NASONEX [Concomitant]
     Dosage: AS NEEDED
     Route: 045
  3. ASPIRIN [Concomitant]
     Dosage: 81 MG, DAILY
  4. VITAMIN D [Concomitant]
     Dosage: EVERY 3 MONTHS
  5. LISINOPRIL [Concomitant]
     Indication: CARDIAC DISORDER
     Dosage: 10 MG, DAILY
  6. DILTIAZEM [Concomitant]
     Indication: CARDIAC DISORDER
     Dosage: 180 MG, DAILY

REACTIONS (34)
  - Cardiac failure congestive [Unknown]
  - Renal failure [Unknown]
  - Diabetes mellitus [Unknown]
  - Immune system disorder [Unknown]
  - Tendon disorder [Unknown]
  - Blood urine present [Not Recovered/Not Resolved]
  - Haematochezia [Not Recovered/Not Resolved]
  - Leukaemia [Not Recovered/Not Resolved]
  - Sjogren^s syndrome [Not Recovered/Not Resolved]
  - Type 2 diabetes mellitus [Not Recovered/Not Resolved]
  - Anaemia [Unknown]
  - Infection [Unknown]
  - Hypertension [Not Recovered/Not Resolved]
  - Chronic obstructive pulmonary disease [Not Recovered/Not Resolved]
  - Diplopia [Not Recovered/Not Resolved]
  - Vision blurred [Not Recovered/Not Resolved]
  - Thrombosis [Not Recovered/Not Resolved]
  - Confusional state [Unknown]
  - Chromaturia [Unknown]
  - Myalgia [Unknown]
  - Arthralgia [Unknown]
  - Tinnitus [Unknown]
  - Diarrhoea [Unknown]
  - Abdominal pain upper [Unknown]
  - Decreased appetite [Unknown]
  - Fatigue [Unknown]
  - Bone pain [Not Recovered/Not Resolved]
  - Fibromyalgia [Not Recovered/Not Resolved]
  - Arthritis [Not Recovered/Not Resolved]
  - Gastrointestinal disorder [Unknown]
  - Asthma [Not Recovered/Not Resolved]
  - Dry eye [Not Recovered/Not Resolved]
  - Weight decreased [Not Recovered/Not Resolved]
  - Dyspepsia [Not Recovered/Not Resolved]
